FAERS Safety Report 5282466-0 (Version None)
Quarter: 2007Q1

REPORT INFORMATION
  Report Type: 
  Country: None (occurrence: None)
  Receive Date: 20070326
  Receipt Date: 20070308
  Transmission Date: 20070707
  Serious: Yes (Hospitalization)
  Sender: FDA-Public Use
  Company Number: 15887

PATIENT
  Age: 67 Year
  Sex: Male

DRUGS (2)
  1. AMIODARONE HCL [Suspect]
     Indication: VENTRICULAR ARRHYTHMIA
  2. AMIODARONE HCL [Suspect]
     Indication: VENTRICULAR ARRHYTHMIA

REACTIONS (3)
  - HEPATITIS FULMINANT [None]
  - HYPOGLYCAEMIA [None]
  - PROTHROMBIN TIME PROLONGED [None]
